FAERS Safety Report 9591441 (Version 1)
Quarter: 2013Q4

REPORT INFORMATION
  Report Type: Spontaneous
  Country: US (occurrence: US)
  Receive Date: 20131003
  Receipt Date: 20131003
  Transmission Date: 20140711
  Serious: No
  Sender: FDA-Public Use
  Company Number: US-AMGEN-USASP2012082126

PATIENT
  Sex: Female

DRUGS (8)
  1. ENBREL [Suspect]
     Indication: PSORIATIC ARTHROPATHY
     Dosage: 25 MG, 2 TIMES/WK, 72-96 HOURS APART
     Route: 058
  2. CELEBREX [Concomitant]
     Dosage: 100 MG, UNK
  3. SYNTHROID [Concomitant]
     Dosage: 50 MCG, UNK, UNK
  4. NEXIUM                             /01479302/ [Concomitant]
     Dosage: 20 MG, UNK
  5. CRESTOR [Concomitant]
     Dosage: 10 MG, UNK
  6. MINERALS NOS W/VITAMINS NOS [Concomitant]
     Dosage: UNK
  7. CALCIUM [Concomitant]
     Dosage: UNK
  8. ASPIRIN [Concomitant]
     Dosage: 81 MG, UNK, ENTERIC COATED

REACTIONS (3)
  - Malaise [Unknown]
  - Injection site bruising [Unknown]
  - Injection site pain [Unknown]
